FAERS Safety Report 8030266-0 (Version None)
Quarter: 2012Q1

REPORT INFORMATION
  Report Type: 
  Country: None (occurrence: None)
  Receive Date: 20120109
  Receipt Date: 20120102
  Transmission Date: 20120608
  Serious: Yes (Death)
  Sender: FDA-Public Use
  Company Number: US-BAYER-2012-001627

PATIENT
  Age: 56 Year

DRUGS (4)
  1. ACETAMINOPHEN AND HYDROCODONE BITARTRATE [Suspect]
  2. PARACETAMOL + DIPHENHYDRAMINE [Suspect]
  3. ACETAMINOPHEN W/ PROPOXYPHENE HCL [Suspect]
  4. CARISOPRODOL WITH ASPIRIN [Suspect]

REACTIONS (1)
  - TOXICITY TO VARIOUS AGENTS [None]
